FAERS Safety Report 20973989 (Version 1)
Quarter: 2022Q2

REPORT INFORMATION
  Report Type: Spontaneous
  Country: US (occurrence: US)
  Receive Date: 20220617
  Receipt Date: 20220617
  Transmission Date: 20220720
  Serious: No
  Sender: FDA-Public Use
  Company Number: US-PFIZER INC-202200792419

PATIENT
  Age: 70 Year
  Sex: Female
  Weight: 61.229 kg

DRUGS (1)
  1. ESTRING [Suspect]
     Active Substance: ESTRADIOL
     Dosage: NDC NUMBER: 00013-2150-36

REACTIONS (1)
  - Expired product administered [Unknown]
